FAERS Safety Report 7406736-2 (Version None)
Quarter: 2011Q2

REPORT INFORMATION
  Report Type: 
  Country: None (occurrence: None)
  Receive Date: 20110406
  Receipt Date: 20110406
  Transmission Date: 20111010
  Serious: No
  Sender: FDA-Public Use
  Company Number: None

PATIENT
  Sex: Female
  Weight: 53.1 kg

DRUGS (2)
  1. TEMOZOLOMIDE [Suspect]
     Dosage: 4475 MG
     Dates: end: 20110213
  2. BEVACIZUMAB (RHUMAB VEGF) [Suspect]
     Dosage: 1030 MG
     Dates: end: 20110314

REACTIONS (2)
  - LOSS OF CONSCIOUSNESS [None]
  - PULMONARY EMBOLISM [None]
